FAERS Safety Report 10238299 (Version 1)
Quarter: 2014Q2

REPORT INFORMATION
  Report Type: Spontaneous
  Country: US (occurrence: US)
  Receive Date: 20140616
  Receipt Date: 20140616
  Transmission Date: 20141212
  Serious: No
  Sender: FDA-Public Use
  Company Number: US-PFIZER INC-2014163551

PATIENT
  Age: 65 Year
  Sex: Female
  Weight: 77.1 kg

DRUGS (9)
  1. LYRICA [Suspect]
     Indication: DIABETIC NEUROPATHY
     Dosage: 100 MG, 3X/DAY
     Route: 048
     Dates: end: 20140605
  2. PLAVIX [Concomitant]
     Indication: CARDIAC DISORDER
     Dosage: 75 MG, 1X/DAY
  3. CARVEDILOL [Concomitant]
     Indication: HYPERTENSION
     Dosage: 12.5 MG, 2X/DAY
  4. DIGOXIN [Concomitant]
     Indication: CARDIAC DISORDER
     Dosage: 0.125 MG, 1X/DAY
  5. FUROSEMIDE [Concomitant]
     Indication: DIURETIC THERAPY
     Dosage: 20 MG, 1X/DAY
  6. CRESTOR [Concomitant]
     Indication: BLOOD CHOLESTEROL INCREASED
     Dosage: 40 MG, 1X/DAY
  7. LEVOTHYROXINE [Concomitant]
     Indication: THYROID DISORDER
     Dosage: 25 MG, 1X/DAY
  8. CAPTOPRIL [Concomitant]
     Dosage: 12.5 MG, 3X/DAY
  9. INSULIN [Concomitant]
     Indication: DIABETES MELLITUS
     Dosage: 45 UNITS, 2X/DAY

REACTIONS (1)
  - Pain [Not Recovered/Not Resolved]
